FAERS Safety Report 9316182 (Version 2)
Quarter: 2013Q3

REPORT INFORMATION
  Report Type: Report from Study
  Country: DE (occurrence: DE)
  Receive Date: 20130530
  Receipt Date: 20130711
  Transmission Date: 20140515
  Serious: Yes (Life-Threatening, Hospitalization, Other)
  Sender: FDA-Public Use
  Company Number: PHHO2013DE006993

PATIENT
  Age: 43 Year
  Sex: Female

DRUGS (1)
  1. CGP 57148B [Suspect]
     Indication: CHRONIC MYELOID LEUKAEMIA
     Dosage: 400 MG, UNK
     Route: 048
     Dates: start: 20080726, end: 20121023

REACTIONS (1)
  - Meningioma malignant [Not Recovered/Not Resolved]
